FAERS Safety Report 10290169 (Version 1)
Quarter: 2014Q3

REPORT INFORMATION
  Report Type: Spontaneous
  Country: GB (occurrence: None)
  Receive Date: 20140708
  Receipt Date: 20140708
  Transmission Date: 20150326
  Serious: Yes (Other)
  Sender: FDA-Public Use
  Company Number: AUR-APL-2014-07045

PATIENT
  Age: 67 Year
  Sex: Female
  Weight: 90 kg

DRUGS (8)
  1. RAMIPRIL(RAMIPRIL) [Concomitant]
  2. OMEPRAZOLE(OMEPRAZOLE) [Concomitant]
     Active Substance: OMEPRAZOLE
  3. CITALOPRAM (CITALOPRAM) UNKNOWN [Suspect]
     Active Substance: CITALOPRAM HYDROBROMIDE
     Indication: PRODUCT USED FOR UNKNOWN INDICATION
     Dates: start: 20140304
  4. ATORVASTATIN(ATORVASTATIN) [Concomitant]
  5. MOMETASONE(MOMETASONE) [Concomitant]
  6. KETOCONAZOLE(KETOCONAZOLE) [Concomitant]
  7. PARAFFIN, LIQUID (PARAFFIN, LIQUID) [Concomitant]
  8. AMLODIPINE [Concomitant]
     Active Substance: AMLODIPINE BESYLATE

REACTIONS (2)
  - Electrocardiogram abnormal [None]
  - Electrocardiogram QT prolonged [None]

NARRATIVE: CASE EVENT DATE: 20140617
